FAERS Safety Report 8404364-3 (Version None)
Quarter: 2012Q2

REPORT INFORMATION
  Report Type: 
  Country: None (occurrence: None)
  Receive Date: 20120601
  Receipt Date: 20111101
  Transmission Date: 20120825
  Serious: No
  Sender: FDA-Public Use
  Company Number: US-NOVEN-11US003538

PATIENT
  Sex: Female

DRUGS (4)
  1. CONCERTA [Concomitant]
     Indication: OPPOSITIONAL DEFIANT DISORDER
  2. DAYTRANA [Suspect]
     Dosage: 30 MG, 1 PATCH DAILY FOR 9HRS
     Dates: start: 20110801
  3. CONCERTA [Concomitant]
     Indication: ATTENTION DEFICIT/HYPERACTIVITY DISORDER
     Route: 048
  4. DAYTRANA [Suspect]
     Indication: ATTENTION DEFICIT/HYPERACTIVITY DISORDER
     Dosage: 30 MG, 1 PATCH DAILY FOR 9HRS
     Dates: start: 20110801

REACTIONS (3)
  - PRODUCT QUALITY ISSUE [None]
  - DRUG DOSE OMISSION [None]
  - NO ADVERSE EVENT [None]
